FAERS Safety Report 10022005 (Version 1)
Quarter: 2014Q1

REPORT INFORMATION
  Report Type: Spontaneous
  Country: US (occurrence: None)
  Receive Date: 20140318
  Receipt Date: 20140318
  Transmission Date: 20141002
  Serious: Yes (Other)
  Sender: FDA-Public Use
  Company Number: None

PATIENT
  Age: 33 Year
  Sex: Female
  Weight: 49.9 kg

DRUGS (3)
  1. SEROQUEL [Suspect]
     Indication: SLEEP DISORDER
     Dosage: ONE TABLET TWICE DAILY TAKEN BY MOUTH
     Dates: start: 20140305, end: 20140315
  2. SEROQUEL [Suspect]
     Indication: NIGHTMARE
     Dosage: ONE TABLET TWICE DAILY TAKEN BY MOUTH
     Dates: start: 20140305, end: 20140315
  3. SEROQUEL [Suspect]
     Indication: PSYCHOTIC DISORDER
     Dosage: ONE TABLET TWICE DAILY TAKEN BY MOUTH
     Dates: start: 20140305, end: 20140315

REACTIONS (1)
  - Vasoconstriction [None]
